FAERS Safety Report 5077001-6 (Version None)
Quarter: 2006Q3

REPORT INFORMATION
  Report Type: 
  Country: None (occurrence: None)
  Receive Date: 20060810
  Receipt Date: 20060522
  Transmission Date: 20061208
  Serious: No
  Sender: FDA-Public Use
  Company Number: US-GLAXOSMITHKLINE-A0606542A

PATIENT
  Sex: Female

DRUGS (5)
  1. PAROXETINE HCL [Suspect]
     Dosage: 20MG PER DAY
     Route: 048
     Dates: start: 20030101
  2. VITAMINS [Concomitant]
  3. FLAX SEED [Concomitant]
  4. CALCIUM GLUCONATE [Concomitant]
  5. ASCORBIC ACID [Concomitant]

REACTIONS (1)
  - WEIGHT INCREASED [None]
